FAERS Safety Report 14176641 (Version 1)
Quarter: 2017Q4

REPORT INFORMATION
  Report Type: Spontaneous
  Country: US (occurrence: US)
  Receive Date: 20171109
  Receipt Date: 20171109
  Transmission Date: 20180321
  Serious: Yes (Disabling)
  Sender: FDA-Public Use
  Company Number: None

PATIENT
  Age: 25 Year
  Sex: Female
  Weight: 72 kg

DRUGS (3)
  1. MAGNESIUM [Concomitant]
     Active Substance: MAGNESIUM
  2. ADVANTAN FATTY OINTMENT [Suspect]
     Active Substance: METHYLPREDNISOLONE ACEPONATE
     Indication: ECZEMA
     Route: 061
     Dates: start: 20130903, end: 20160405
  3. VITAMIN D [Concomitant]
     Active Substance: CHOLECALCIFEROL

REACTIONS (8)
  - Wrong schedule [None]
  - Erythema [None]
  - Emotional distress [None]
  - Product measured potency issue [None]
  - Drug intolerance [None]
  - Drug ineffective [None]
  - Pruritus [None]
  - Swelling [None]

NARRATIVE: CASE EVENT DATE: 20170405
